FAERS Safety Report 5246959-4 (Version None)
Quarter: 2007Q1

REPORT INFORMATION
  Report Type: 
  Country: None (occurrence: None)
  Receive Date: 20070226
  Receipt Date: 20070219
  Transmission Date: 20070707
  Serious: Yes (Hospitalization)
  Sender: FDA-Public Use
  Company Number: US-GLAXOSMITHKLINE-A0640084A

PATIENT
  Age: 55 Year
  Sex: Male

DRUGS (2)
  1. COREG [Suspect]
     Route: 065
  2. DIABETES MEDICATION [Concomitant]

REACTIONS (3)
  - BEDRIDDEN [None]
  - FATIGUE [None]
  - MALAISE [None]
